FAERS Safety Report 5813165-1 (Version None)
Quarter: 2008Q3

REPORT INFORMATION
  Report Type: 
  Country: None (occurrence: None)
  Receive Date: 20080717
  Receipt Date: 20080312
  Transmission Date: 20090109
  Serious: No
  Sender: FDA-Public Use
  Company Number: A0714806A

PATIENT
  Age: 29 Year
  Sex: Male

DRUGS (1)
  1. NICORETTE [Suspect]
     Dates: start: 20080201

REACTIONS (5)
  - ABNORMAL BEHAVIOUR [None]
  - ABNORMAL DREAMS [None]
  - NICOTINE DEPENDENCE [None]
  - PANIC ATTACK [None]
  - WITHDRAWAL SYNDROME [None]
